FAERS Safety Report 23268349 (Version 1)
Quarter: 2023Q4

REPORT INFORMATION
  Report Type: Spontaneous
  Country: CN (occurrence: CN)
  Receive Date: 20231206
  Receipt Date: 20231206
  Transmission Date: 20240110
  Serious: Yes (Life-Threatening)
  Sender: FDA-Public Use
  Company Number: CN-BAUSCH-BL-2023-017702

PATIENT
  Sex: Male

DRUGS (10)
  1. DEXAMETHASONE [Suspect]
     Active Substance: DEXAMETHASONE
     Indication: Precursor B-lymphoblastic lymphoma
     Dosage: HYPER-CVAD REGIMEN, MOPAD REGIMEN
     Route: 065
  2. METHOTREXATE [Suspect]
     Active Substance: METHOTREXATE
     Indication: Precursor B-lymphoblastic lymphoma
     Dosage: MOPAD REGIMEN
     Route: 065
  3. VINCRISTINE [Suspect]
     Active Substance: VINCRISTINE
     Indication: Precursor B-lymphoblastic lymphoma
     Dosage: HYPER-CVAD REGIMEN, MOPAD REGIMEN
     Route: 065
  4. ASPARAGINASE [Suspect]
     Active Substance: ASPARAGINASE
     Indication: Precursor B-lymphoblastic lymphoma
     Dosage: MOPAD REGIMEN
     Route: 065
  5. CYCLOPHOSPHAMIDE [Suspect]
     Active Substance: CYCLOPHOSPHAMIDE
     Indication: Precursor B-lymphoblastic lymphoma
     Dosage: HYPER-CVAD REGIMEN
     Route: 065
  6. DOXORUBICIN [Suspect]
     Active Substance: DOXORUBICIN
     Indication: Precursor B-lymphoblastic lymphoma
     Dosage: HYPER-CVAD REGIMEN
     Route: 065
  7. FLUDARABINE [Suspect]
     Active Substance: FLUDARABINE PHOSPHATE
     Indication: Precursor B-lymphoblastic lymphoma
     Dosage: FLAG-IDA REGIMEN
     Route: 065
  8. CYTARABINE [Suspect]
     Active Substance: CYTARABINE
     Indication: Precursor B-lymphoblastic lymphoma
     Dosage: FLAG-IDA REGIMEN
     Route: 065
  9. IDARUBICIN [Suspect]
     Active Substance: IDARUBICIN
     Indication: Precursor B-lymphoblastic lymphoma
     Dosage: FLAG-IDA REGIMEN
     Route: 065
  10. GRANULOCYTE COLONY-STIMULATING FACTOR NOS [Suspect]
     Active Substance: GRANULOCYTE COLONY-STIMULATING FACTOR NOS
     Indication: Precursor B-lymphoblastic lymphoma
     Dosage: FLAG-IDA REGIMEN
     Route: 065

REACTIONS (1)
  - Therapy non-responder [Unknown]
